FAERS Safety Report 10151455 (Version 1)
Quarter: 2014Q2

REPORT INFORMATION
  Report Type: Spontaneous
  Country: US (occurrence: US)
  Receive Date: 20140504
  Receipt Date: 20140504
  Transmission Date: 20141212
  Serious: Yes (Hospitalization)
  Sender: FDA-Public Use
  Company Number: US-BRISTOL-MYERS SQUIBB COMPANY-20670071

PATIENT
  Age: 16 Year
  Sex: Male

DRUGS (5)
  1. ABILIFY TABS 2 MG [Suspect]
     Indication: IRRITABILITY
     Route: 048
     Dates: end: 20140210
  2. ABILIFY TABS 2 MG [Suspect]
     Indication: AGGRESSION
     Route: 048
     Dates: end: 20140210
  3. ABILIFY TABS 2 MG [Suspect]
     Indication: DEPRESSION
     Route: 048
     Dates: end: 20140210
  4. TENEX [Concomitant]
  5. RITALIN [Concomitant]

REACTIONS (7)
  - Suicidal ideation [Not Recovered/Not Resolved]
  - Aggression [Not Recovered/Not Resolved]
  - Irritability [Not Recovered/Not Resolved]
  - Cognitive disorder [Not Recovered/Not Resolved]
  - Fatigue [Not Recovered/Not Resolved]
  - Insomnia [Not Recovered/Not Resolved]
  - Off label use [Unknown]
